FAERS Safety Report 9904910 (Version 3)
Quarter: 2014Q1

REPORT INFORMATION
  Report Type: Spontaneous
  Country: US (occurrence: US)
  Receive Date: 20140218
  Receipt Date: 20140326
  Transmission Date: 20141002
  Serious: Yes (Other)
  Sender: FDA-Public Use
  Company Number: US-BAYER-2014-025178

PATIENT
  Age: 26 Year
  Sex: Female
  Weight: 64.85 kg

DRUGS (4)
  1. MIRENA [Suspect]
     Indication: CONTRACEPTION
     Dosage: 20 MCG/24HR, CONT
     Route: 015
     Dates: start: 20120612, end: 20140102
  2. MIRENA [Suspect]
     Indication: MENORRHAGIA
  3. LEXAPRO [Concomitant]
  4. ADDERALL [Concomitant]

REACTIONS (2)
  - Ectopic pregnancy with contraceptive device [None]
  - Drug ineffective [None]
